FAERS Safety Report 12469612 (Version 3)
Quarter: 2016Q3

REPORT INFORMATION
  Report Type: Spontaneous
  Country: US (occurrence: US)
  Receive Date: 20160615
  Receipt Date: 20160715
  Transmission Date: 20161109
  Serious: Yes (Other)
  Sender: FDA-Public Use
  Company Number: GXBR2016US002068

PATIENT

DRUGS (2)
  1. CLONAZEPAM TABLETS, USP [Suspect]
     Active Substance: CLONAZEPAM
     Indication: NECK PAIN
     Dosage: 0.5 MG, UNK
     Route: 048
  2. CLONAZEPAM TABLETS, USP [Suspect]
     Active Substance: CLONAZEPAM
     Dosage: 0.5 MG, UNK
     Route: 048

REACTIONS (8)
  - Withdrawal syndrome [Unknown]
  - Malaise [Unknown]
  - Burning sensation [Unknown]
  - Drug effect variable [Unknown]
  - Fatigue [Unknown]
  - Neck pain [Unknown]
  - Hypersomnia [Unknown]
  - Feeling of despair [Unknown]
